FAERS Safety Report 11827693 (Version 1)
Quarter: 2015Q4

REPORT INFORMATION
  Report Type: Report from Study
  Country: CA (occurrence: CA)
  Receive Date: 20151211
  Receipt Date: 20151211
  Transmission Date: 20160305
  Serious: Yes (Hospitalization)
  Sender: FDA-Public Use
  Company Number: CA-JNJFOC-20151203840

PATIENT
  Age: 63 Year
  Sex: Female
  Weight: 63.1 kg

DRUGS (32)
  1. REMICADE [Suspect]
     Active Substance: INFLIXIMAB
     Indication: RHEUMATOID ARTHRITIS
     Dosage: 60TH INFUSION
     Route: 042
  2. ROSUVASTATIN [Suspect]
     Active Substance: ROSUVASTATIN
     Indication: PRODUCT USED FOR UNKNOWN INDICATION
     Dosage: 01 TABLET ONCE DAILY
     Route: 065
     Dates: start: 20150612
  3. ROSUVASTATIN [Suspect]
     Active Substance: ROSUVASTATIN
     Indication: PRODUCT USED FOR UNKNOWN INDICATION
     Dosage: 01 TABLET ONCE DAILY
     Route: 065
     Dates: start: 20151201
  4. ROSUVASTATIN [Suspect]
     Active Substance: ROSUVASTATIN
     Indication: PRODUCT USED FOR UNKNOWN INDICATION
     Dosage: 01 TABLET ONCE DAILY
     Route: 065
     Dates: start: 20151127
  5. RAMIPRIL. [Suspect]
     Active Substance: RAMIPRIL
     Indication: PRODUCT USED FOR UNKNOWN INDICATION
     Dosage: 01 CAPSULE ONCE IN A DAY
     Route: 065
     Dates: start: 20150612
  6. RISEDRONATE [Suspect]
     Active Substance: RISEDRONATE SODIUM
     Indication: PRODUCT USED FOR UNKNOWN INDICATION
     Dosage: 01 TABLET ONCE IN A WEEK, DO NOT CRUSH OR CHEW.
     Route: 065
     Dates: start: 20151127
  7. MORPHINE [Concomitant]
     Active Substance: MORPHINE
     Dosage: 01 TABLET ONCE DAILY
     Route: 065
     Dates: start: 20150717
  8. NAPROXEN. [Concomitant]
     Active Substance: NAPROXEN
     Dosage: TABLET TWICE IN DAY WITH MEALS IF PAIN PERSISTS.
     Route: 065
     Dates: start: 20151201
  9. METOPROLOL [Concomitant]
     Active Substance: METOPROLOL
     Dosage: 01 TABLET ONCE IN A DAY
     Route: 065
     Dates: start: 20150612
  10. GLICLAZIDE [Concomitant]
     Active Substance: GLICLAZIDE
     Route: 065
     Dates: start: 20150612
  11. GLICLAZIDE [Concomitant]
     Active Substance: GLICLAZIDE
     Route: 065
     Dates: start: 20151127
  12. RAMIPRIL. [Suspect]
     Active Substance: RAMIPRIL
     Indication: PRODUCT USED FOR UNKNOWN INDICATION
     Dosage: 01 CAPSULE ONCE IN A DAY
     Route: 065
     Dates: start: 20151127
  13. SYNTHROID [Concomitant]
     Active Substance: LEVOTHYROXINE SODIUM
     Dosage: 88 MCG, 01 TABLET ONCE DAILY
     Route: 065
     Dates: start: 20150925
  14. PREDNISONE. [Concomitant]
     Active Substance: PREDNISONE
     Dosage: 01 TABLET ONCE IN A DAY
     Route: 065
     Dates: start: 20150612
  15. INFLUVAC [Concomitant]
     Active Substance: INFLUENZA VIRUS VACCINE
     Dosage: IMMUNIZATION (6 TO 9 YRS).
     Route: 065
  16. REMICADE [Suspect]
     Active Substance: INFLIXIMAB
     Indication: RHEUMATOID ARTHRITIS
     Route: 042
  17. ASA [Concomitant]
     Active Substance: ASPIRIN
     Dosage: 01 TABLET ONCE DAILY
     Route: 065
     Dates: start: 20141224
  18. METOPROLOL [Concomitant]
     Active Substance: METOPROLOL
     Dosage: 01 TABLET ONCE IN A DAY
     Route: 065
     Dates: start: 20151127
  19. PANTOPRAZOLE [Concomitant]
     Active Substance: PANTOPRAZOLE SODIUM
     Dosage: 01 TABLET ONCE IN A DAY BEFORE BREAKFAST, DO NOT CRUSH OR CHEW.
     Route: 065
  20. NITROGLYCERIN. [Concomitant]
     Active Substance: NITROGLYCERIN
     Dosage: 01 SPRAY UNDER THE TONGUE, MAY REPEAT IN 5 MINS UPTO MAX OF 03 DOSES.
     Route: 060
     Dates: start: 20151127
  21. PANTOPRAZOLE [Concomitant]
     Active Substance: PANTOPRAZOLE SODIUM
     Dosage: 01 TABLET ONCE IN A DAY BEFORE BREAKFAST, DO NOT CRUSH OR CHEW.
     Route: 065
     Dates: start: 20150612
  22. CLOPIDOGREL [Concomitant]
     Active Substance: CLOPIDOGREL BISULFATE
     Dosage: 01 TABLET ONCE DAILY
     Route: 065
     Dates: start: 20151127
  23. MORPHINE [Concomitant]
     Active Substance: MORPHINE
     Dosage: 01 TABLET ONCE DAILY
     Route: 065
     Dates: start: 20151010
  24. SYNTHROID [Concomitant]
     Active Substance: LEVOTHYROXINE SODIUM
     Route: 065
     Dates: start: 20150703
  25. ASA [Concomitant]
     Active Substance: ASPIRIN
     Dosage: 01 TABLET ONCE DAILY
     Route: 065
     Dates: start: 20151127
  26. SYNTHROID [Concomitant]
     Active Substance: LEVOTHYROXINE SODIUM
     Dosage: 88 MCG, 01 TABLET ONCE DAILY
     Route: 065
     Dates: start: 20150612
  27. SYNTHROID [Concomitant]
     Active Substance: LEVOTHYROXINE SODIUM
     Dosage: 88 MCG, 01 TABLET ONCE DAILY
     Route: 065
     Dates: start: 20151030
  28. CIPROFLOXACIN. [Concomitant]
     Active Substance: CIPROFLOXACIN
     Dosage: 01 TABLET TWICE DAILY UNTIL FINISHED
     Route: 065
     Dates: start: 20150717
  29. RISEDRONATE [Suspect]
     Active Substance: RISEDRONATE SODIUM
     Indication: PRODUCT USED FOR UNKNOWN INDICATION
     Dosage: 01 TABLET ONCE IN A WEEK, DO NOT CRUSH OR CHEW.
     Route: 065
     Dates: start: 20150612
  30. CLOPIDOGREL [Concomitant]
     Active Substance: CLOPIDOGREL BISULFATE
     Dosage: 01 TABLET ONCE DAILY
     Route: 065
     Dates: start: 20150612
  31. SYNTHROID [Concomitant]
     Active Substance: LEVOTHYROXINE SODIUM
     Dosage: 88 MCG, 01 TABLET ONCE DAILY
     Route: 065
     Dates: start: 20151127
  32. PREDNISONE. [Concomitant]
     Active Substance: PREDNISONE
     Dosage: 01 TABLET ONCE IN A DAY
     Route: 065
     Dates: start: 20151127

REACTIONS (3)
  - Fatigue [Unknown]
  - Groin pain [Unknown]
  - Asthenia [Unknown]

NARRATIVE: CASE EVENT DATE: 20151124
